FAERS Safety Report 5479816-9 (Version None)
Quarter: 2007Q4

REPORT INFORMATION
  Report Type: 
  Country: None (occurrence: None)
  Receive Date: 20071008
  Receipt Date: 20070927
  Transmission Date: 20080405
  Serious: Yes (Other)
  Sender: FDA-Public Use
  Company Number: PHBS2007JP15756

PATIENT
  Age: 12 Year
  Sex: Male

DRUGS (4)
  1. FLUDARABINE PHOSPHATE [Concomitant]
     Dosage: 25 MG/M2
  2. MELPHALAN [Concomitant]
     Dosage: 100 MG/M2
  3. METHOTREXATE [Suspect]
  4. SANDIMMUNE [Suspect]
     Indication: STEM CELL TRANSPLANT
     Dosage: 200 MG/DAY
     Route: 042
     Dates: start: 20060501, end: 20060701

REACTIONS (4)
  - ACUTE GRAFT VERSUS HOST DISEASE IN SKIN [None]
  - DRUG LEVEL DECREASED [None]
  - RASH [None]
  - STOMATITIS [None]
